FAERS Safety Report 8386493-6 (Version None)
Quarter: 2012Q2

REPORT INFORMATION
  Report Type: 
  Country: None (occurrence: None)
  Receive Date: 20120525
  Receipt Date: 20120515
  Transmission Date: 20120825
  Serious: Yes (Hospitalization)
  Sender: FDA-Public Use
  Company Number: GB-AMGEN-GBRSP2012031532

PATIENT
  Age: 63 Year
  Sex: Female
  Weight: 84 kg

DRUGS (9)
  1. RANITIDINE [Concomitant]
     Indication: PROPHYLAXIS
     Dosage: 150 MG, BID
     Route: 048
  2. DIHYDROCODEINE BITARTRATE INJ [Concomitant]
     Indication: ANALGESIC THERAPY
     Dosage: 120 MG, BID
     Route: 048
  3. SIMVASTATIN [Concomitant]
     Indication: MYOCARDIAL ISCHAEMIA
     Dosage: 40 MG, QD
     Route: 048
  4. MIRTAZAPINE [Concomitant]
     Dosage: 15 MG, QD
     Route: 048
  5. ACETYLSALICYLIC ACID SRT [Concomitant]
     Dosage: 75 MG, QD
     Route: 048
  6. ENBREL [Suspect]
     Indication: RHEUMATOID ARTHRITIS
     Dosage: 25 MG, 2 TIMES/WK
     Route: 058
     Dates: start: 20050101
  7. BISOPROLOL FUMARATE [Concomitant]
     Indication: MYOCARDIAL ISCHAEMIA
     Dosage: 10 MG, QD
     Route: 048
  8. AMITRIPTYLINE HCL [Concomitant]
     Dosage: 75 MG, QD
     Route: 048
  9. CELECOXIB [Concomitant]
     Indication: ANALGESIC THERAPY
     Dosage: 100 MG, BID
     Route: 048

REACTIONS (4)
  - WHITE BLOOD CELL COUNT INCREASED [None]
  - C-REACTIVE PROTEIN INCREASED [None]
  - CELLULITIS [None]
  - NEUTROPHIL COUNT INCREASED [None]
